FAERS Safety Report 6331064-6 (Version None)
Quarter: 2009Q3

REPORT INFORMATION
  Report Type: 
  Country: None (occurrence: None)
  Receive Date: 20090827
  Receipt Date: 20090820
  Transmission Date: 20100115
  Serious: Yes (Death)
  Sender: FDA-Public Use
  Company Number: B0589792A

PATIENT
  Sex: Male

DRUGS (4)
  1. REQUIP [Suspect]
     Indication: PARKINSON'S DISEASE
     Dosage: .25MG THREE TIMES PER DAY
     Route: 048
     Dates: start: 20090806, end: 20090813
  2. ARTANE [Concomitant]
     Indication: PARKINSON'S DISEASE
     Route: 048
     Dates: end: 20090813
  3. BASEN [Concomitant]
     Indication: DIABETES MELLITUS
     Dosage: .2MG THREE TIMES PER DAY
     Route: 048
     Dates: end: 20090813
  4. SYMMETREL [Concomitant]
     Indication: PARKINSON'S DISEASE
     Dosage: 50MG TWICE PER DAY
     Route: 048
     Dates: end: 20090813

REACTIONS (1)
  - DEATH [None]
